FAERS Safety Report 8001906-7 (Version None)
Quarter: 2011Q4

REPORT INFORMATION
  Report Type: 
  Country: None (occurrence: None)
  Receive Date: 20111222
  Receipt Date: 20111221
  Transmission Date: 20120403
  Serious: Yes (Life-Threatening)
  Sender: FDA-Public Use
  Company Number: FR-ABBOTT-11P-056-0885344-00

PATIENT
  Sex: Male

DRUGS (9)
  1. CELOCURINE [Suspect]
     Indication: ANAESTHESIA
     Dates: start: 20111005, end: 20111005
  2. SEVOFLURANE [Suspect]
     Indication: ANAESTHESIA
     Route: 055
     Dates: start: 20111005, end: 20111005
  3. SURMONTIL [Concomitant]
     Indication: PRODUCT USED FOR UNKNOWN INDICATION
  4. CREON [Concomitant]
     Indication: DIARRHOEA
  5. ESCITALOPRAM OXALATE [Concomitant]
     Indication: PRODUCT USED FOR UNKNOWN INDICATION
  6. PROPOFOL [Suspect]
     Indication: ANAESTHESIA
     Route: 042
     Dates: start: 20111005, end: 20111005
  7. ALFENTANIL [Suspect]
     Indication: ANAESTHESIA
     Route: 042
     Dates: start: 20111005, end: 20111005
  8. CLORAZEPATE DIPOTASSIUM [Concomitant]
     Indication: PRODUCT USED FOR UNKNOWN INDICATION
  9. NEXIUM [Concomitant]
     Indication: DIARRHOEA

REACTIONS (1)
  - ANAPHYLACTIC SHOCK [None]
